FAERS Safety Report 6969538-7 (Version None)
Quarter: 2010Q3

REPORT INFORMATION
  Report Type: 
  Country: None (occurrence: None)
  Receive Date: 20100907
  Receipt Date: 20100907
  Transmission Date: 20110219
  Serious: Yes (Life-Threatening)
  Sender: FDA-Public Use
  Company Number: None

PATIENT
  Sex: Female
  Weight: 77.1115 kg

DRUGS (2)
  1. SIMVASTATIN [Suspect]
     Indication: BLOOD TRIGLYCERIDES INCREASED
     Dosage: 45 MG 1 A DAY PO
     Route: 048
     Dates: start: 20070715, end: 20071015
  2. TRICOR [Suspect]
     Indication: BLOOD TRIGLYCERIDES INCREASED
     Dosage: 145 MG 1 A DAY PO
     Route: 048
     Dates: start: 20080715, end: 20081015

REACTIONS (7)
  - ABASIA [None]
  - HEPATIC CIRRHOSIS [None]
  - LIVER DISORDER [None]
  - MOVEMENT DISORDER [None]
  - MUSCLE DISORDER [None]
  - PAIN [None]
  - RENAL DISORDER [None]
